FAERS Safety Report 21205457 (Version 1)
Quarter: 2022Q3

REPORT INFORMATION
  Report Type: Spontaneous
  Country: US (occurrence: US)
  Receive Date: 20220812
  Receipt Date: 20220812
  Transmission Date: 20221027
  Serious: No
  Sender: FDA-Public Use
  Company Number: US-BIOGENIDEC-2015BI011887

PATIENT
  Age: 38 Year
  Sex: Female

DRUGS (6)
  1. TECFIDERA [Suspect]
     Active Substance: DIMETHYL FUMARATE
     Indication: Multiple sclerosis
     Route: 050
     Dates: start: 20141227, end: 20150102
  2. TECFIDERA [Suspect]
     Active Substance: DIMETHYL FUMARATE
     Route: 050
     Dates: start: 20150103
  3. TECFIDERA [Suspect]
     Active Substance: DIMETHYL FUMARATE
     Route: 050
  4. HERBALS\TURMERIC [Concomitant]
     Active Substance: HERBALS\TURMERIC
     Route: 050
  5. VITAMIN D3 [Concomitant]
     Active Substance: CHOLECALCIFEROL
     Route: 050
  6. PROZAC [Concomitant]
     Active Substance: FLUOXETINE HYDROCHLORIDE
     Route: 050

REACTIONS (4)
  - Decreased appetite [Unknown]
  - Abdominal distension [Recovered/Resolved]
  - Flushing [Unknown]
  - Nausea [Recovered/Resolved]

NARRATIVE: CASE EVENT DATE: 20141201
